FAERS Safety Report 6616979-3 (Version None)
Quarter: 2010Q1

REPORT INFORMATION
  Report Type: 
  Country: None (occurrence: None)
  Receive Date: 20100301
  Receipt Date: 20100218
  Transmission Date: 20100710
  Serious: Yes (Other)
  Sender: FDA-Public Use
  Company Number: 007192

PATIENT
  Sex: Female
  Weight: 74 kg

DRUGS (8)
  1. ALPROSTADIL [Suspect]
     Indication: PERIPHERAL ISCHAEMIA
     Dosage: (40 UG BID INTRAVENOUS (NOT OTHERWISE SPECIFIED))
     Route: 042
     Dates: start: 20100211
  2. PROMEDOL [Concomitant]
  3. ANALGIN /00039501/ [Concomitant]
  4. ALPRAZOLAM [Concomitant]
  5. NICOTINIC ACID [Concomitant]
  6. ACTOVEGIN [Concomitant]
  7. ACTRAPID /0064601/ [Concomitant]
  8. INSULIN PROTAPHAN HUMAN [Concomitant]

REACTIONS (4)
  - BURSITIS [None]
  - CELLULITIS [None]
  - JOINT EFFUSION [None]
  - PAIN [None]
